FAERS Safety Report 15305518 (Version 1)
Quarter: 2018Q3

REPORT INFORMATION
  Report Type: Spontaneous
  Country: IT (occurrence: IT)
  Receive Date: 20180822
  Receipt Date: 20180822
  Transmission Date: 20181010
  Serious: Yes (Hospitalization)
  Sender: FDA-Public Use
  Company Number: IT-AUROBINDO-AUR-APL-2017-06730

PATIENT
  Age: 40 Year
  Sex: Female

DRUGS (1)
  1. AMOXICILLIN+CLAVULANIC ACID [Suspect]
     Active Substance: AMOXICILLIN\CLAVULANIC ACID
     Indication: ANTIBIOTIC PROPHYLAXIS
     Dosage: 3 G, ONCE A DAY
     Route: 048

REACTIONS (5)
  - Acute generalised exanthematous pustulosis [Recovered/Resolved]
  - Skin lesion [Recovered/Resolved]
  - Scar [Not Recovered/Not Resolved]
  - Pain [Recovered/Resolved]
  - Pigmentation disorder [Not Recovered/Not Resolved]
